FAERS Safety Report 14232946 (Version 2)
Quarter: 2018Q1

REPORT INFORMATION
  Report Type: Spontaneous
  Country: IE (occurrence: IE)
  Receive Date: 20171129
  Receipt Date: 20180103
  Transmission Date: 20180508
  Serious: Yes (Hospitalization, Other)
  Sender: FDA-Public Use
  Company Number: IE-JNJFOC-20171123050

PATIENT
  Age: 37 Year
  Sex: Male

DRUGS (4)
  1. DARATUMUMAB [Suspect]
     Active Substance: DARATUMUMAB
     Indication: EPSTEIN-BARR VIRUS ASSOCIATED LYMPHOMA
  2. ASPARAGINASE [Concomitant]
     Active Substance: ASPARAGINASE
     Indication: LYMPHOMA
  3. METHOTREXATE. [Concomitant]
     Active Substance: METHOTREXATE
     Indication: LYMPHOMA
  4. DARATUMUMAB [Suspect]
     Active Substance: DARATUMUMAB
     Indication: EPSTEIN-BARR VIRUS ASSOCIATED LYMPHOMA
     Dosage: FOR 2 WEEKS

REACTIONS (2)
  - Mucosal inflammation [Recovered/Resolved]
  - Sepsis [Recovered/Resolved]
